FAERS Safety Report 10613976 (Version 2)
Quarter: 2014Q4

REPORT INFORMATION
  Report Type: Report from Study
  Country: AU (occurrence: AU)
  Receive Date: 20141128
  Receipt Date: 20141128
  Transmission Date: 20150529
  Serious: Yes (Other)
  Sender: FDA-Public Use
  Company Number: AU-BRISTOL-MYERS SQUIBB COMPANY-21463047

PATIENT
  Age: 37 Year
  Sex: Female

DRUGS (4)
  1. CIPRAMIL [Concomitant]
     Active Substance: CITALOPRAM HYDROBROMIDE
  2. NUROFEN [Concomitant]
     Active Substance: IBUPROFEN
  3. METHOTREXATE [Concomitant]
     Active Substance: METHOTREXATE
  4. ORENCIA [Suspect]
     Active Substance: ABATACEPT
     Indication: RHEUMATOID ARTHRITIS
     Dosage: INTERRUPTED DATE:27-OCT-2014
     Route: 042
     Dates: start: 20110603

REACTIONS (1)
  - Limb operation [Unknown]
